FAERS Safety Report 24067012 (Version 1)
Quarter: 2024Q3

REPORT INFORMATION
  Report Type: Spontaneous
  Country: US (occurrence: US)
  Receive Date: 20240709
  Receipt Date: 20240709
  Transmission Date: 20241017
  Serious: No
  Sender: VISTAPHARM
  Company Number: US-VISTAPHARM-2023-US-029680

PATIENT
  Age: 65 Year
  Sex: Female
  Weight: 63.96 kg

DRUGS (1)
  1. NYSTATIN [Suspect]
     Active Substance: NYSTATIN
     Indication: Oral candidiasis
     Dosage: 4 TIMES A DAY, AS DIRECTED.
     Route: 048
     Dates: start: 20230828

REACTIONS (2)
  - Drug ineffective [Unknown]
  - Cough [Unknown]

NARRATIVE: CASE EVENT DATE: 20230828
